FAERS Safety Report 15766769 (Version 2)
Quarter: 2019Q1

REPORT INFORMATION
  Report Type: Spontaneous
  Country: US (occurrence: US)
  Receive Date: 20181227
  Receipt Date: 20190123
  Transmission Date: 20190417
  Serious: Yes (Other)
  Sender: FDA-Public Use
  Company Number: PHHY2018US195208

PATIENT
  Age: 67 Year
  Sex: Male

DRUGS (4)
  1. SOLU-CORTEF [Concomitant]
     Active Substance: HYDROCORTISONE SODIUM SUCCINATE
     Indication: POSTOPERATIVE CARE
     Route: 057
  2. POVIDONE [Concomitant]
     Active Substance: POVIDONE
     Indication: PREOPERATIVE CARE
     Route: 047
  3. FORTAZ [Concomitant]
     Active Substance: CEFTAZIDIME SODIUM
     Indication: POSTOPERATIVE CARE
     Route: 057
  4. BSS [Suspect]
     Active Substance: CALCIUM CHLORIDE\MAGNESIUM CHLORIDE\POTASSIUM CHLORIDE\SODIUM ACETATE\SODIUM CHLORIDE\SODIUM CITRATE
     Indication: PRODUCT USED FOR UNKNOWN INDICATION
     Route: 031

REACTIONS (3)
  - Endophthalmitis [Recovering/Resolving]
  - Visual acuity reduced [Recovering/Resolving]
  - Product quality issue [Unknown]

NARRATIVE: CASE EVENT DATE: 20181112
